FAERS Safety Report 4977582-4 (Version None)
Quarter: 2006Q2

REPORT INFORMATION
  Report Type: 
  Country: None (occurrence: None)
  Receive Date: 20060420
  Receipt Date: 20051218
  Transmission Date: 20061013
  Serious: Yes (Other)
  Sender: FDA-Public Use
  Company Number: PHEH2005US13632

PATIENT
  Age: 76 Year
  Sex: Male

DRUGS (2)
  1. ZOMETA [Suspect]
     Indication: MULTIPLE MYELOMA
     Dosage: UNK, UNK
     Dates: start: 19930401, end: 20050101
  2. AREDIA [Suspect]
     Indication: MULTIPLE MYELOMA
     Dates: start: 19930401, end: 20050101

REACTIONS (8)
  - IMPAIRED HEALING [None]
  - JAW FRACTURE [None]
  - OSTEONECROSIS [None]
  - SINUSITIS [None]
  - SOFT TISSUE INFECTION [None]
  - TOOTH EXTRACTION [None]
  - TOOTH INFECTION [None]
  - WEIGHT DECREASED [None]
